FAERS Safety Report 13584888 (Version 1)
Quarter: 2017Q2

REPORT INFORMATION
  Report Type: Spontaneous
  Country: TR (occurrence: TR)
  Receive Date: 20170526
  Receipt Date: 20170526
  Transmission Date: 20170830
  Serious: Yes (Death, Hospitalization, Other)
  Sender: FDA-Public Use
  Company Number: TR-AMGEN-TURSP2017079681

PATIENT
  Age: 64 Year
  Sex: Male
  Weight: 89 kg

DRUGS (9)
  1. REDOX C [Concomitant]
     Indication: NEPHROGENIC ANAEMIA
     Dosage: 500 MG, 3 TIMES/WK
     Dates: start: 20170311, end: 20170321
  2. PHOS NO [Concomitant]
     Indication: CHRONIC KIDNEY DISEASE
     Dosage: 1000 MG, TID
     Dates: start: 20170119, end: 20170321
  3. HEPARGRIZOVIM [Concomitant]
     Indication: NEPHROGENIC ANAEMIA
     Dosage: 1 ML, QWK
     Dates: start: 20170311, end: 20170316
  4. ARANESP [Suspect]
     Active Substance: DARBEPOETIN ALFA
     Indication: ANAEMIA
     Dosage: 60 MUG, QWK
     Route: 042
     Dates: start: 20170314, end: 20170321
  5. LEKARNITIN [Concomitant]
     Indication: NEPHROGENIC ANAEMIA
     Dosage: 1 G, 3 TIMES/WK
     Dates: start: 20170311, end: 20170321
  6. FERROVEN [Concomitant]
     Indication: NEPHROGENIC ANAEMIA
     Dosage: 100 MG, 2 TIMES/WK
     Dates: start: 20170204, end: 20170318
  7. ROCALTROL [Concomitant]
     Active Substance: CALCITRIOL
     Indication: CHRONIC KIDNEY DISEASE
     Dosage: 0.25 MUG, QD
     Dates: start: 20170119, end: 20170321
  8. VENTOLIN [Concomitant]
     Active Substance: ALBUTEROL SULFATE
     Indication: CHRONIC OBSTRUCTIVE PULMONARY DISEASE
     Dosage: 100 MUG, TID
     Dates: start: 20170119, end: 20170321
  9. LERCADIP [Concomitant]
     Active Substance: LERCANIDIPINE HYDROCHLORIDE
     Indication: HYPERTENSION
     Dosage: 10 MG, QD
     Dates: start: 20170119, end: 20170321

REACTIONS (1)
  - Lung neoplasm malignant [Fatal]

NARRATIVE: CASE EVENT DATE: 20170322
